FAERS Safety Report 6401547-9 (Version None)
Quarter: 2009Q4

REPORT INFORMATION
  Report Type: 
  Country: None (occurrence: None)
  Receive Date: 20091013
  Receipt Date: 20091013
  Transmission Date: 20100525
  Serious: No
  Sender: FDA-Public Use
  Company Number: None

PATIENT
  Sex: Female
  Weight: 97.5234 kg

DRUGS (1)
  1. CITALOPRAM HYDROBROMIDE [Suspect]
     Indication: DEPRESSION
     Dosage: 40MG 1 X DAY PO
     Route: 048
     Dates: start: 20090202, end: 20091002

REACTIONS (28)
  - AGORAPHOBIA [None]
  - APHASIA [None]
  - CONFUSIONAL STATE [None]
  - DECREASED APPETITE [None]
  - DIARRHOEA [None]
  - DIZZINESS [None]
  - DRUG WITHDRAWAL SYNDROME [None]
  - DRY MOUTH [None]
  - DYSGEUSIA [None]
  - FATIGUE [None]
  - HALLUCINATION, TACTILE [None]
  - HALLUCINATIONS, MIXED [None]
  - HYPERSOMNIA [None]
  - INITIAL INSOMNIA [None]
  - IRRITABILITY [None]
  - LOSS OF LIBIDO [None]
  - MIDDLE INSOMNIA [None]
  - MOTOR DYSFUNCTION [None]
  - MUSCLE SPASMS [None]
  - MYALGIA [None]
  - NAUSEA [None]
  - NEURALGIA [None]
  - OROPHARYNGEAL PAIN [None]
  - PANIC ATTACK [None]
  - PARAESTHESIA [None]
  - VERTIGO [None]
  - VOMITING [None]
  - WEIGHT INCREASED [None]
